FAERS Safety Report 6962149-9 (Version None)
Quarter: 2010Q3

REPORT INFORMATION
  Report Type: 
  Country: None (occurrence: None)
  Receive Date: 20100830
  Receipt Date: 20100812
  Transmission Date: 20110219
  Serious: Yes (Hospitalization)
  Sender: FDA-Public Use
  Company Number: 2010003388

PATIENT
  Age: 60 Year
  Sex: Female

DRUGS (1)
  1. ERLOTINIB HYDROCHLORIDE [Suspect]
     Indication: LUNG NEOPLASM MALIGNANT
     Dosage: (150 MG,QD),ORAL
     Route: 048
     Dates: start: 20100725, end: 20100728

REACTIONS (4)
  - DIARRHOEA [None]
  - ILL-DEFINED DISORDER [None]
  - SUBILEUS [None]
  - VOMITING [None]
